FAERS Safety Report 13415737 (Version 4)
Quarter: 2017Q2

REPORT INFORMATION
  Report Type: Spontaneous
  Country: CH (occurrence: FR)
  Receive Date: 20170406
  Receipt Date: 20170628
  Transmission Date: 20170830
  Serious: Yes (Hospitalization)
  Sender: FDA-Public Use
  Company Number: CH-LPDUSPRD-20170372

PATIENT
  Age: 54 Year
  Sex: Male

DRUGS (35)
  1. VERSATIS [Suspect]
     Active Substance: LIDOCAINE
     Dosage: DOSE UNKNOWN
     Route: 058
     Dates: end: 20170207
  2. OMEPRAZOLE. [Suspect]
     Active Substance: OMEPRAZOLE
     Dosage: 40MG, 1 DAY
     Route: 048
     Dates: end: 20170207
  3. MOVICOL [Suspect]
     Active Substance: POLYETHYLENE GLYCOL 3350\POTASSIUM CHLORIDE\SODIUM BICARBONATE\SODIUM CHLORIDE
     Dosage: UNKNOWN DOSE
     Route: 048
  4. CLOPIDOGREL [Suspect]
     Active Substance: CLOPIDOGREL BISULFATE
     Dosage: 75 MG, 1 IN 1 DAY
     Route: 048
     Dates: end: 20161212
  5. HUMALOG [Suspect]
     Active Substance: INSULIN LISPRO
     Dosage: 4 IU, 3 IN 1 DAY
     Route: 058
  6. OXYNORM [Suspect]
     Active Substance: OXYCODONE HYDROCHLORIDE
     Dosage: 6 DF
     Route: 048
  7. ATARAX [Suspect]
     Active Substance: HYDROXYZINE HYDROCHLORIDE
     Dosage: 1 DF, 4 IN 1 DAY
     Route: 048
     Dates: start: 20170129, end: 20170207
  8. PARACETAMOL [Suspect]
     Active Substance: ACETAMINOPHEN
     Dosage: 1GM,4 IN 1 DAY
     Route: 048
     Dates: start: 20170203
  9. LYRICA [Suspect]
     Active Substance: PREGABALIN
     Dosage: 1 DF, 3 IN 1 DAY
     Route: 048
     Dates: start: 20170207
  10. LANTUS [Suspect]
     Active Substance: INSULIN GLARGINE
     Dosage: 25 IU
     Route: 058
  11. TAZOCILLINE [Suspect]
     Active Substance: PIPERACILLIN SODIUM\TAZOBACTAM SODIUM
     Dosage: 1 DF, 3 IN 1 DAY
     Route: 042
     Dates: start: 20170208, end: 20170304
  12. LOVENOX [Suspect]
     Active Substance: ENOXAPARIN SODIUM
     Dosage: 4000 IU
     Route: 058
     Dates: start: 20161223, end: 20170306
  13. ZOPHREN [Suspect]
     Active Substance: ONDANSETRON
     Dosage: 12 MG 1 IN 1 DAY
     Route: 042
     Dates: start: 20170105
  14. TARDYFERON [Suspect]
     Active Substance: FERROUS SULFATE
     Dosage: 1 DF, 2 IN 1 DAY
     Route: 048
     Dates: start: 201702, end: 20170304
  15. AUGMENTIN [Suspect]
     Active Substance: AMOXICILLIN\CLAVULANATE POTASSIUM
     Dosage: 1 GM, 3 IN 1 DAY
     Route: 048
     Dates: start: 20170106, end: 20170109
  16. ATORVASTATIN [Suspect]
     Active Substance: ATORVASTATIN
     Dosage: 10 MG, 1 IN 1 DAY
     Route: 048
     Dates: end: 20170112
  17. OFLOCET [Suspect]
     Active Substance: OFLOXACIN
     Dosage: 1DF,1 IN 2 DAY
     Route: 042
     Dates: start: 20170109, end: 20170111
  18. HEPARIN [Suspect]
     Active Substance: HEPARIN SODIUM
     Dosage: 2000 IU
     Route: 058
     Dates: start: 20170122, end: 20170131
  19. VENOFER [Suspect]
     Active Substance: IRON SUCROSE
     Dosage: 300MG, 1 IN 2 DAYS
     Route: 042
     Dates: start: 20170201, end: 20170205
  20. TRAMADOL. [Suspect]
     Active Substance: TRAMADOL
     Dosage: 400 MG, 1 IN 1 DAY
     Route: 048
     Dates: start: 20170203
  21. PERINDOPRIL [Suspect]
     Active Substance: PERINDOPRIL
     Dosage: 8MG 1 IN 1 DAY
     Route: 065
  22. LANSOYL [Suspect]
     Active Substance: MINERAL OIL
     Dosage: DOSE UNKNOWN
     Route: 048
  23. IMOVANE [Suspect]
     Active Substance: ZOPICLONE
     Dosage: 1 DF
     Route: 048
     Dates: start: 2017
  24. ACTISKEN [Suspect]
     Active Substance: MORPHINE SULFATE
     Dosage: 1 DF, 4 IN 1 DAY
     Route: 048
     Dates: start: 201702
  25. ACUPAN [Suspect]
     Active Substance: NEFOPAM HYDROCHLORIDE
     Dosage: 20MG
     Route: 048
  26. GABAPENTIN. [Suspect]
     Active Substance: GABAPENTIN
     Dosage: 300MG 3 IN 1 DAY
     Route: 048
     Dates: end: 20170113
  27. DALACINE [Suspect]
     Active Substance: CLINDAMYCIN HYDROCHLORIDE
     Dosage: 1 DF, 4 IN 1 DAY
     Route: 065
     Dates: start: 20170111, end: 20170208
  28. METFORMIN [Suspect]
     Active Substance: METFORMIN HYDROCHLORIDE
     Dosage: 850MG, 3 IN 1 DAY
     Route: 048
     Dates: start: 20170206
  29. DIAMICRON [Suspect]
     Active Substance: GLICLAZIDE
     Dosage: 3 DF, 1DAY
     Route: 048
     Dates: start: 20170207
  30. KARDEGIC [Suspect]
     Active Substance: ASPIRIN LYSINE
     Dosage: 1 DF
     Route: 048
     Dates: start: 20161212, end: 20170218
  31. NO DRUG NAME [Suspect]
     Active Substance: UNSPECIFIED INGREDIENT
  32. LORMETAZEPAM [Suspect]
     Active Substance: LORMETAZEPAM
     Dosage: DOSE UNKNOWN
     Route: 048
  33. OXYCONTIN [Suspect]
     Active Substance: OXYCODONE HYDROCHLORIDE
     Dosage: 1 DF, 2 IN 1 DAY
     Route: 048
     Dates: start: 201702, end: 20170204
  34. RIFADINE [Suspect]
     Active Substance: RIFAMPIN
     Dosage: 900MG, 2 IN 1 DAY
     Route: 042
     Dates: start: 20170208, end: 20170304
  35. TAVANIC [Suspect]
     Active Substance: LEVOFLOXACIN
     Dosage: 1 DF, 2 IN 1 DAY
     Route: 042
     Dates: start: 20170208, end: 20170304

REACTIONS (5)
  - Pancytopenia [Unknown]
  - Hospitalisation [Unknown]
  - Pyrexia [Unknown]
  - Chills [Unknown]
  - Rash maculo-papular [Unknown]

NARRATIVE: CASE EVENT DATE: 20170304
